FAERS Safety Report 8840669 (Version 2)
Quarter: 2015Q3

REPORT INFORMATION
  Report Type: Report from Study
  Country: US (occurrence: US)
  Receive Date: 20121015
  Receipt Date: 20150814
  Transmission Date: 20151125
  Serious: Yes (Other)
  Sender: FDA-Public Use
  Company Number: US-ROCHE-1138201

PATIENT
  Sex: Male

DRUGS (2)
  1. NUTROPIN [Suspect]
     Active Substance: SOMATROPIN
     Indication: DWARFISM
     Route: 058
     Dates: start: 19970623
  2. SOMATREM [Concomitant]
     Active Substance: SOMATREM
     Route: 065

REACTIONS (2)
  - Bone pain [Unknown]
  - Haematuria [Unknown]
